FAERS Safety Report 21772837 (Version 5)
Quarter: 2023Q1

REPORT INFORMATION
  Report Type: Spontaneous
  Country: US (occurrence: US)
  Receive Date: 20221223
  Receipt Date: 20230227
  Transmission Date: 20230418
  Serious: No
  Sender: FDA-Public Use
  Company Number: US-PFIZER INC-PV202200129002

PATIENT
  Age: 67 Year
  Sex: Male

DRUGS (1)
  1. GENOTROPIN [Suspect]
     Active Substance: SOMATROPIN
     Dosage: 0.2 MG

REACTIONS (6)
  - Weight decreased [Unknown]
  - Fatigue [Unknown]
  - Malaise [Unknown]
  - Device issue [Unknown]
  - Device difficult to use [Unknown]
  - Drug dose omission by device [Unknown]
